FAERS Safety Report 25590655 (Version 2)
Quarter: 2025Q4

REPORT INFORMATION
  Report Type: Spontaneous
  Country: US (occurrence: US)
  Receive Date: 20250722
  Receipt Date: 20251018
  Transmission Date: 20260117
  Serious: Yes (Other)
  Sender: JOHNSON AND JOHNSON
  Company Number: US-JNJFOC-20250720414

PATIENT
  Age: 75 Year
  Sex: Female
  Weight: 48.08 kg

DRUGS (2)
  1. TALQUETAMAB [Suspect]
     Active Substance: TALQUETAMAB
     Indication: Plasma cell myeloma
     Dosage: STEP UP DOSING: D1, 0.01 MG/KG; D4, 0.06 MG/KG; D7, 0.4 MG/KG; FOLLOWED BY STANDARD WEEKLY DOSING OF
     Route: 058
     Dates: start: 20240327
  2. IMMUNOGLOBULINS [Concomitant]
     Indication: Prophylaxis
     Route: 042

REACTIONS (2)
  - Cytopenia [Unknown]
  - Dysgeusia [Unknown]
